FAERS Safety Report 8164112-1 (Version None)
Quarter: 2012Q1

REPORT INFORMATION
  Report Type: 
  Country: None (occurrence: None)
  Receive Date: 20120224
  Receipt Date: 20120216
  Transmission Date: 20120608
  Serious: Yes (Death)
  Sender: FDA-Public Use
  Company Number: TW-BAXTER-2012BH004765

PATIENT
  Sex: Female

DRUGS (6)
  1. EXTRANEAL [Suspect]
     Indication: PERITONEAL DIALYSIS
     Route: 033
     Dates: start: 20110401
  2. DIANEAL [Suspect]
     Route: 033
     Dates: start: 20110401
  3. DIANEAL [Suspect]
     Indication: PERITONEAL DIALYSIS
     Route: 033
     Dates: start: 20110401
  4. DIANEAL [Suspect]
     Route: 033
     Dates: start: 20110401
  5. EXTRANEAL [Suspect]
     Route: 033
     Dates: start: 20110401
  6. DIANEAL [Suspect]
     Indication: PERITONEAL DIALYSIS
     Route: 033
     Dates: start: 20110401

REACTIONS (1)
  - SEPSIS [None]
